FAERS Safety Report 25831134 (Version 1)
Quarter: 2025Q3

REPORT INFORMATION
  Report Type: Spontaneous
  Country: US (occurrence: US)
  Receive Date: 20250922
  Receipt Date: 20250922
  Transmission Date: 20251020
  Serious: No
  Sender: SANOFI AVENTIS
  Company Number: US-SANOFI-02658176

PATIENT
  Age: 79 Year
  Sex: Female

DRUGS (1)
  1. SOLIQUA 100/33 [Suspect]
     Active Substance: INSULIN GLARGINE\LIXISENATIDE
     Indication: Type 2 diabetes mellitus
     Dosage: 42 UNITS TO 50 UNITS  QD AND DRUG TREATMENT DURATION:3 DAYS
     Route: 058
     Dates: start: 2022

REACTIONS (2)
  - Blood glucose fluctuation [Unknown]
  - Off label use [Unknown]
